FAERS Safety Report 18084177 (Version 1)
Quarter: 2020Q3

REPORT INFORMATION
  Report Type: Spontaneous
  Country: US (occurrence: US)
  Receive Date: 20200729
  Receipt Date: 20200729
  Transmission Date: 20201103
  Serious: No
  Sender: FDA-Public Use
  Company Number: US-DRREDDYS-USA/USA/20/0125261

PATIENT
  Age: 62 Year
  Sex: Female
  Weight: 46.8 kg

DRUGS (2)
  1. ATORVASTATIN TABLETS 10MG, 20 MG, 40 MG (091650) [Concomitant]
     Active Substance: ATORVASTATIN
     Indication: PRODUCT USED FOR UNKNOWN INDICATION
     Route: 065
  2. IBANDRONATE SODIUM TABLETS 150 MG [Suspect]
     Active Substance: IBANDRONATE SODIUM
     Indication: OSTEOPOROSIS
     Route: 048
     Dates: start: 20200717

REACTIONS (2)
  - Chest pain [Unknown]
  - Back pain [Unknown]
